FAERS Safety Report 10267718 (Version 1)
Quarter: 2014Q2

REPORT INFORMATION
  Report Type: Spontaneous
  Country: US (occurrence: None)
  Receive Date: 20140626
  Receipt Date: 20140626
  Transmission Date: 20141212
  Serious: Yes (Other)
  Sender: FDA-Public Use
  Company Number: None

PATIENT
  Age: 57 Year
  Sex: Female
  Weight: 61.24 kg

DRUGS (2)
  1. CYMBALTA [Suspect]
     Indication: ANXIETY
     Route: 048
     Dates: start: 20140516, end: 20140523
  2. CYMBALTA [Suspect]
     Indication: PAIN
     Route: 048
     Dates: start: 20140516, end: 20140523

REACTIONS (4)
  - Nausea [None]
  - Headache [None]
  - Product substitution issue [None]
  - Therapeutic response changed [None]
